FAERS Safety Report 17461278 (Version 1)
Quarter: 2020Q1

REPORT INFORMATION
  Report Type: Spontaneous
  Country: US (occurrence: US)
  Receive Date: 20200213
  Receipt Date: 20200213
  Transmission Date: 20200409
  Serious: Yes (Other)
  Sender: FDA-Public Use
  Company Number: None

PATIENT
  Age: 21 Year
  Sex: Male
  Weight: 102.97 kg

DRUGS (1)
  1. LEVOTHYROXINE 125MCG [Suspect]
     Active Substance: LEVOTHYROXINE SODIUM
     Indication: HYPOTHYROIDISM
     Dosage: STOP 09 23-2020
     Route: 048
     Dates: start: 20190913

REACTIONS (2)
  - Diarrhoea [None]
  - Product substitution issue [None]

NARRATIVE: CASE EVENT DATE: 20190923
